FAERS Safety Report 6751514-0 (Version None)
Quarter: 2010Q2

REPORT INFORMATION
  Report Type: 
  Country: None (occurrence: None)
  Receive Date: 20100602
  Receipt Date: 20100528
  Transmission Date: 20101027
  Serious: Yes (Other)
  Sender: FDA-Public Use
  Company Number: A0861944A

PATIENT
  Age: 53 Year
  Sex: Female

DRUGS (3)
  1. ALLI [Suspect]
     Indication: WEIGHT LOSS DIET
     Route: 048
     Dates: start: 20100201
  2. VITAMIN D SUPPLEMENT [Concomitant]
  3. CALCIUM WITH VITAMIN D [Concomitant]

REACTIONS (2)
  - DRUG ADMINISTRATION ERROR [None]
  - LIVER FUNCTION TEST ABNORMAL [None]
